FAERS Safety Report 11290825 (Version 1)
Quarter: 2015Q3

REPORT INFORMATION
  Report Type: Report from Study
  Country: US (occurrence: US)
  Receive Date: 20150722
  Receipt Date: 20150722
  Transmission Date: 20151125
  Serious: Yes (Hospitalization, Other)
  Sender: FDA-Public Use
  Company Number: US-GILEAD-2015-0161791

PATIENT
  Age: 74 Year
  Sex: Female

DRUGS (4)
  1. ADEMPAS [Concomitant]
     Active Substance: RIOCIGUAT
  2. WARFARIN [Concomitant]
     Active Substance: WARFARIN
  3. AMBRISENTAN [Suspect]
     Active Substance: AMBRISENTAN
     Indication: PRODUCT USED FOR UNKNOWN INDICATION
     Dosage: 10 MG, QD
     Route: 065
     Dates: start: 20141216
  4. TYVASO [Suspect]
     Active Substance: TREPROSTINIL
     Indication: PRODUCT USED FOR UNKNOWN INDICATION
     Route: 065

REACTIONS (11)
  - Abdominal pain [Recovered/Resolved]
  - Blood test abnormal [Unknown]
  - Mineral supplementation [Unknown]
  - Dizziness [Unknown]
  - Chest discomfort [Unknown]
  - Malaise [Unknown]
  - Dizziness postural [Unknown]
  - Dyspnoea [Unknown]
  - Tinnitus [Unknown]
  - Headache [Unknown]
  - Transfusion [Unknown]
